FAERS Safety Report 7244199-0 (Version None)
Quarter: 2011Q1

REPORT INFORMATION
  Report Type: 
  Country: None (occurrence: None)
  Receive Date: 20110125
  Receipt Date: 20110103
  Transmission Date: 20110831
  Serious: Yes (Hospitalization)
  Sender: FDA-Public Use
  Company Number: US-BAYER-200940515NA

PATIENT
  Sex: Female
  Weight: 77 kg

DRUGS (5)
  1. HYZAAR [Concomitant]
     Dates: start: 20060101
  2. IMITREX [Concomitant]
     Dates: start: 19970101, end: 20000101
  3. YAZ [Suspect]
     Indication: PREMENSTRUAL SYNDROME
     Route: 048
     Dates: start: 20070901, end: 20071215
  4. ZITHROMAX [Concomitant]
     Dosage: VARIOUS YEARS
  5. NSAID'S [Concomitant]

REACTIONS (5)
  - PULMONARY EMBOLISM [None]
  - ANXIETY [None]
  - DEPRESSION [None]
  - DYSPNOEA [None]
  - NON-CARDIAC CHEST PAIN [None]
